FAERS Safety Report 16630306 (Version 1)
Quarter: 2019Q3

REPORT INFORMATION
  Report Type: Spontaneous
  Country: US (occurrence: US)
  Receive Date: 20190725
  Receipt Date: 20190725
  Transmission Date: 20191004
  Serious: No
  Sender: FDA-Public Use
  Company Number: US-JNJFOC-20190722986

PATIENT
  Sex: Male
  Weight: 101.24 kg

DRUGS (1)
  1. TYLENOL [Suspect]
     Active Substance: ACETAMINOPHEN
     Indication: PAIN
     Dosage: 2 PILLS TWICE DAILY, EVERYDAY
     Route: 048

REACTIONS (1)
  - Blood glucose abnormal [Unknown]
